FAERS Safety Report 24264467 (Version 1)
Quarter: 2024Q3

REPORT INFORMATION
  Report Type: Spontaneous
  Country: US (occurrence: US)
  Receive Date: 20240829
  Receipt Date: 20240829
  Transmission Date: 20241017
  Serious: No
  Sender: MERCK
  Company Number: US-009507513-2408USA000281

PATIENT
  Age: 41 Year
  Sex: Male

DRUGS (1)
  1. NOXAFIL [Suspect]
     Active Substance: POSACONAZOLE
     Indication: Coccidioidomycosis
     Dosage: 300 MILLIGRAM, DAILY
     Route: 048

REACTIONS (1)
  - Product use in unapproved indication [Unknown]
